FAERS Safety Report 13124947 (Version 1)
Quarter: 2017Q1

REPORT INFORMATION
  Report Type: Spontaneous
  Country: US (occurrence: US)
  Receive Date: 20170118
  Receipt Date: 20170118
  Transmission Date: 20170428
  Serious: Yes (Hospitalization)
  Sender: FDA-Public Use
  Company Number: US-MALLINCKRODT-T201700099

PATIENT
  Age: 16 Year
  Sex: Female

DRUGS (1)
  1. GABLOFEN [Suspect]
     Active Substance: BACLOFEN
     Indication: PRODUCT USED FOR UNKNOWN INDICATION
     Dosage: 99.9 ?G, QD
     Route: 037
     Dates: end: 20161215

REACTIONS (11)
  - Vomiting [Recovered/Resolved]
  - Phonophobia [Recovered/Resolved]
  - Headache [Recovered/Resolved]
  - Retching [Not Recovered/Not Resolved]
  - Nausea [Not Recovered/Not Resolved]
  - Hypertonia [Unknown]
  - Urinary retention [Not Recovered/Not Resolved]
  - Seizure [Recovered/Resolved]
  - Photophobia [Recovered/Resolved]
  - Neck pain [Recovered/Resolved]
  - Muscle spasticity [Unknown]

NARRATIVE: CASE EVENT DATE: 20161213
